FAERS Safety Report 6083607-8 (Version None)
Quarter: 2009Q1

REPORT INFORMATION
  Report Type: 
  Country: None (occurrence: None)
  Receive Date: 20090219
  Receipt Date: 20090209
  Transmission Date: 20090719
  Serious: Yes (Life-Threatening)
  Sender: FDA-Public Use
  Company Number: IT-SANOFI-SYNTHELABO-A06200800782

PATIENT
  Sex: Male

DRUGS (2)
  1. FLUOROURACIL [Suspect]
     Indication: COLON CANCER
     Route: 042
     Dates: start: 20080303, end: 20080303
  2. ELOXATIN [Concomitant]
     Indication: COLON CANCER
     Route: 042
     Dates: start: 20080303, end: 20080303

REACTIONS (3)
  - BRONCHOSPASM [None]
  - DYSPNOEA [None]
  - LARYNGOSPASM [None]
